FAERS Safety Report 17996994 (Version 2)
Quarter: 2020Q3

REPORT INFORMATION
  Report Type: Report from Study
  Country: CA (occurrence: CA)
  Receive Date: 20200708
  Receipt Date: 20200904
  Transmission Date: 20201103
  Serious: Yes (Other)
  Sender: FDA-Public Use
  Company Number: PHHY2016CA115526

PATIENT
  Age: 41 Year
  Sex: Female

DRUGS (3)
  1. MAYZENT [Suspect]
     Active Substance: SIPONIMOD
     Dosage: 2 MG
     Route: 048
     Dates: start: 20200826
  2. MAYZENT [Suspect]
     Active Substance: SIPONIMOD
     Indication: SECONDARY PROGRESSIVE MULTIPLE SCLEROSIS
     Dosage: UNK
     Route: 048
     Dates: start: 20200821
  3. GILENYA [Suspect]
     Active Substance: FINGOLIMOD HYDROCHLORIDE
     Indication: MULTIPLE SCLEROSIS
     Dosage: UNK
     Route: 048
     Dates: start: 20160819

REACTIONS (16)
  - Limb discomfort [Unknown]
  - Product use in unapproved indication [Unknown]
  - Erythema [Unknown]
  - Multiple sclerosis relapse [Unknown]
  - Hypokinesia [Unknown]
  - Asthenia [Unknown]
  - Nasopharyngitis [Unknown]
  - Back pain [Unknown]
  - Fatigue [Unknown]
  - Lymph node pain [Unknown]
  - Illness [Unknown]
  - Discomfort [Unknown]
  - Blood pressure decreased [Unknown]
  - Muscular weakness [Unknown]
  - Tremor [Unknown]
  - Dizziness [Unknown]

NARRATIVE: CASE EVENT DATE: 20160825
